FAERS Safety Report 21921045 (Version 2)
Quarter: 2023Q4

REPORT INFORMATION
  Report Type: Report from Study
  Country: TH (occurrence: TH)
  Receive Date: 20230127
  Receipt Date: 20231127
  Transmission Date: 20240109
  Serious: Yes (Hospitalization, Other)
  Sender: FDA-Public Use
  Company Number: TH-KOREA IPSEN Pharma-2023-00173

PATIENT
  Age: 43 Year
  Sex: Female

DRUGS (1)
  1. LANREOTIDE ACETATE [Suspect]
     Active Substance: LANREOTIDE ACETATE
     Indication: Gastroenteropancreatic neuroendocrine tumour disease
     Dosage: 120 MG,EVERY 4 WEEKS
     Route: 058
     Dates: start: 20221130, end: 202303

REACTIONS (2)
  - Fatigue [Unknown]
  - Malignant neoplasm progression [Unknown]
